FAERS Safety Report 19563927 (Version 1)
Quarter: 2021Q3

REPORT INFORMATION
  Report Type: Spontaneous
  Country: DE (occurrence: DE)
  Receive Date: 20210714
  Receipt Date: 20210714
  Transmission Date: 20211014
  Serious: Yes (Hospitalization)
  Sender: FDA-Public Use
  Company Number: DE-PFIZER INC-2021805186

PATIENT
  Age: 57 Year
  Sex: Female
  Weight: 74 kg

DRUGS (7)
  1. LEVOTHYROXINE SODIUM. [Concomitant]
     Active Substance: LEVOTHYROXINE SODIUM
     Dosage: 0.15 MG, 1?0?0?0
     Route: 048
  2. ACETYLSALICYLSAEURE [Concomitant]
     Active Substance: ASPIRIN
     Dosage: 100 MG, 0?1?0?0
     Route: 048
  3. METOPROLOL. [Concomitant]
     Active Substance: METOPROLOL
     Dosage: FREQ:12 H;47.5 MG, 0.5?0?0.5?0
     Route: 048
  4. RANOLAZINE. [Interacting]
     Active Substance: RANOLAZINE
     Dosage: 375 MG, 1X/DAY, 0?0?1?0
     Route: 048
  5. ATORVASTATIN CALCIUM. [Suspect]
     Active Substance: ATORVASTATIN CALCIUM
     Dosage: 80 MG, 1X/DAY, 0?0?1?0
     Route: 048
  6. IRON COMPLEX [IRON] [Concomitant]
     Active Substance: IRON
     Dosage: 100 MG, 1?0?0?0
     Route: 048
  7. PANTOPRAZOL [PANTOPRAZOLE] [Concomitant]
     Active Substance: PANTOPRAZOLE
     Dosage: 20 MG, 0?0?1?0
     Route: 048

REACTIONS (7)
  - Liver function test abnormal [Unknown]
  - Ocular icterus [Unknown]
  - Abdominal pain [Unknown]
  - Labelled drug-drug interaction medication error [Unknown]
  - Chromaturia [Unknown]
  - Muscle spasms [Unknown]
  - Faeces pale [Unknown]
